FAERS Safety Report 4644546-X (Version None)
Quarter: 2005Q2

REPORT INFORMATION
  Report Type: 
  Country: None (occurrence: None)
  Receive Date: 20050331
  Receipt Date: 20041201
  Transmission Date: 20051028
  Serious: No
  Sender: FDA-Public Use
  Company Number: 04P-163-0281871-00

PATIENT
  Age: 54 Year
  Sex: Female
  Weight: 96.6162 kg

DRUGS (5)
  1. HUMIRA [Suspect]
     Indication: RHEUMATOID ARTHRITIS
     Dosage: 40 MG, 1 IN 2 WK, SUBCUTANEOUS
     Route: 058
     Dates: start: 20041111
  2. PYRIDOSTIGMINE BROMIDE [Concomitant]
  3. LEVOTHYROXINE SODIUM [Concomitant]
  4. PAROXETINE HYDROCHLORIDE [Concomitant]
  5. ALPRAZOLAM [Concomitant]

REACTIONS (3)
  - CONDITION AGGRAVATED [None]
  - INJECTION SITE IRRITATION [None]
  - MYALGIA [None]
